FAERS Safety Report 4864980-2 (Version None)
Quarter: 2005Q4

REPORT INFORMATION
  Report Type: 
  Country: None (occurrence: None)
  Receive Date: 20051223
  Receipt Date: 20051219
  Transmission Date: 20060501
  Serious: Yes (Other)
  Sender: FDA-Public Use
  Company Number: PHNU2005DE04214

PATIENT
  Sex: Female

DRUGS (2)
  1. ZOMETA [Suspect]
     Dosage: 4 MG, QMO
     Dates: start: 20040901, end: 20051026
  2. GEMZAR [Concomitant]
     Route: 065
     Dates: start: 20050828, end: 20050828

REACTIONS (2)
  - COORDINATION ABNORMAL [None]
  - POLYNEUROPATHY [None]
